FAERS Safety Report 7869885-0 (Version None)
Quarter: 2011Q4

REPORT INFORMATION
  Report Type: 
  Country: None (occurrence: None)
  Receive Date: 20111027
  Receipt Date: 20111019
  Transmission Date: 20120403
  Serious: Yes (Hospitalization)
  Sender: FDA-Public Use
  Company Number: 125283

PATIENT
  Age: 64 Year
  Sex: Male

DRUGS (6)
  1. PCA PUMP [Concomitant]
  2. FENTANYL-100 [Concomitant]
  3. LISINOPRIL [Concomitant]
  4. ADRIAMYCIN PFS [Suspect]
     Indication: MULTIPLE MYELOMA
     Dosage: 30MG/M2; DAY OF EACH CYCLE; IV
     Route: 042
     Dates: start: 20110705
  5. IV DILAUDID [Concomitant]
  6. NORVASC [Concomitant]

REACTIONS (2)
  - BONE PAIN [None]
  - PAIN [None]
